FAERS Safety Report 5819806-7 (Version None)
Quarter: 2008Q3

REPORT INFORMATION
  Report Type: 
  Country: None (occurrence: None)
  Receive Date: 20080723
  Receipt Date: 20080712
  Transmission Date: 20090109
  Serious: Yes (Other)
  Sender: FDA-Public Use
  Company Number: PT-PFIZER INC-2008059140

PATIENT
  Age: 16 Year
  Sex: Female

DRUGS (1)
  1. CYTOTEC [Suspect]
     Route: 067

REACTIONS (3)
  - ABORTION [None]
  - LICHENOID KERATOSIS [None]
  - OFF LABEL USE [None]
